FAERS Safety Report 23086916 (Version 1)
Quarter: 2023Q4

REPORT INFORMATION
  Report Type: Report from Study
  Country: US (occurrence: US)
  Receive Date: 20231020
  Receipt Date: 20231020
  Transmission Date: 20240110
  Serious: Yes (Other)
  Sender: FDA-Public Use
  Company Number: US-ABBVIE-5453256

PATIENT
  Sex: Male
  Weight: 105 kg

DRUGS (7)
  1. HUMIRA [Suspect]
     Active Substance: ADALIMUMAB
     Indication: Sarcoidosis
     Dosage: FORM STRENGTH: 40 MG, START DATE TEXT: EITHER FALL OF 2019 OR 2020
     Route: 058
     Dates: end: 20220911
  2. HUMIRA [Suspect]
     Active Substance: ADALIMUMAB
     Indication: Uveitis
     Dosage: FORM STRENGTH: 40 MG,?START DATE TEXT: EITHER SUMMER OF 2018 OR 2019,?STOP DATE TEXT: EITHER FALL...
     Route: 058
  3. HUMIRA [Suspect]
     Active Substance: ADALIMUMAB
     Dosage: FORM STRENGTH: 40 MG
     Route: 058
     Dates: start: 20221016
  4. PRAVASTATIN [Suspect]
     Active Substance: PRAVASTATIN
     Indication: Blood cholesterol increased
     Route: 065
     Dates: start: 202212, end: 202301
  5. VITAMIN D [Concomitant]
     Active Substance: VITAMIN D NOS
     Indication: Vitamin supplementation
  6. VITAMIN C [Concomitant]
     Active Substance: ASCORBIC ACID
     Indication: Vitamin supplementation
  7. ROSUVASTATIN [Suspect]
     Active Substance: ROSUVASTATIN
     Indication: Blood cholesterol abnormal
     Route: 065
     Dates: start: 202209, end: 202212

REACTIONS (15)
  - Coronary artery disease [Recovering/Resolving]
  - Device issue [Not Recovered/Not Resolved]
  - Skin discolouration [Recovered/Resolved]
  - Malaise [Recovered/Resolved]
  - Visual field defect [Not Recovered/Not Resolved]
  - Arterial occlusive disease [Recovered/Resolved]
  - Uveitis [Recovered/Resolved]
  - Diarrhoea [Recovered/Resolved]
  - Pain [Recovered/Resolved]
  - Visual impairment [Not Recovered/Not Resolved]
  - Hyperhidrosis [Recovered/Resolved]
  - Blood cholesterol increased [Not Recovered/Not Resolved]
  - Arthralgia [Recovered/Resolved]
  - SARS-CoV-2 test positive [Recovered/Resolved]
  - Off label use [Not Recovered/Not Resolved]

NARRATIVE: CASE EVENT DATE: 20200101
